FAERS Safety Report 23070118 (Version 14)
Quarter: 2025Q2

REPORT INFORMATION
  Report Type: Spontaneous
  Country: US (occurrence: US)
  Receive Date: 20231016
  Receipt Date: 20250408
  Transmission Date: 20250716
  Serious: No
  Sender: PFIZER
  Company Number: US-PFIZER INC-202300316070

PATIENT
  Age: 81 Year
  Sex: Female
  Weight: 45.805 kg

DRUGS (3)
  1. TIKOSYN [Suspect]
     Active Substance: DOFETILIDE
     Indication: Atrial fibrillation
     Dosage: 0.25 MG, 2X/DAY
     Dates: start: 2022
  2. TIKOSYN [Suspect]
     Active Substance: DOFETILIDE
     Dosage: 125 UG, 2X/DAY
  3. TIKOSYN [Suspect]
     Active Substance: DOFETILIDE

REACTIONS (5)
  - Pain [Recovered/Resolved]
  - Visual impairment [Unknown]
  - Haematoma [Unknown]
  - Fall [Unknown]
  - Product dispensing issue [Unknown]
